FAERS Safety Report 8460169-9 (Version None)
Quarter: 2012Q2

REPORT INFORMATION
  Report Type: 
  Country: None (occurrence: None)
  Receive Date: 20120622
  Receipt Date: 20120619
  Transmission Date: 20120825
  Serious: Yes (Death, Hospitalization)
  Sender: FDA-Public Use
  Company Number: HU-B.I. PHARMACEUTICALS,INC./RIDGEFIELD-2012-AP-00426AP

PATIENT
  Age: 80 Year
  Sex: Female

DRUGS (6)
  1. CONCOR [Concomitant]
  2. ADIMET [Concomitant]
  3. PRADAXA [Suspect]
     Route: 048
     Dates: start: 20120519, end: 20120519
  4. RETAFYLLIN [Concomitant]
  5. SPIRONOLACTONE [Concomitant]
  6. PAFENON [Concomitant]

REACTIONS (6)
  - ACUTE MYOCARDIAL INFARCTION [None]
  - TREMOR [None]
  - VOMITING [None]
  - CHEST PAIN [None]
  - HYPERHIDROSIS [None]
  - TACHYCARDIA [None]
